FAERS Safety Report 21920670 (Version 1)
Quarter: 2023Q1

REPORT INFORMATION
  Report Type: Report from Study
  Country: CO (occurrence: CO)
  Receive Date: 20230127
  Receipt Date: 20230127
  Transmission Date: 20230417
  Serious: Yes (Other)
  Sender: FDA-Public Use
  Company Number: CO-ABBVIE-4282892

PATIENT
  Sex: Female
  Weight: 42 kg

DRUGS (2)
  1. ZEMPLAR [Suspect]
     Active Substance: PARICALCITOL
     Indication: Chronic kidney disease
     Route: 042
     Dates: start: 20200926
  2. THYROXINE [Concomitant]
     Active Substance: LEVOTHYROXINE
     Indication: Blood phosphorus abnormal
     Route: 048
     Dates: start: 202102

REACTIONS (18)
  - Blood parathyroid hormone abnormal [Recovered/Resolved]
  - Haemorrhage [Recovering/Resolving]
  - Anaemia [Recovering/Resolving]
  - Blood potassium abnormal [Recovering/Resolving]
  - Blood calcium abnormal [Recovering/Resolving]
  - Arteriovenous fistula site complication [Not Recovered/Not Resolved]
  - Bone demineralisation [Not Recovered/Not Resolved]
  - Blood phosphorus abnormal [Recovered/Resolved]
  - Inflammation [Not Recovered/Not Resolved]
  - Skin mass [Not Recovered/Not Resolved]
  - Blood phosphorus abnormal [Recovering/Resolving]
  - Osteoporosis [Not Recovered/Not Resolved]
  - Device related bacteraemia [Not Recovered/Not Resolved]
  - Asthenia [Recovering/Resolving]
  - Bone loss [Not Recovered/Not Resolved]
  - Pain [Not Recovered/Not Resolved]
  - Blood parathyroid hormone abnormal [Not Recovered/Not Resolved]
  - Skin bacterial infection [Not Recovered/Not Resolved]

NARRATIVE: CASE EVENT DATE: 20210101
